FAERS Safety Report 6945400-0 (Version None)
Quarter: 2010Q3

REPORT INFORMATION
  Report Type: 
  Country: None (occurrence: None)
  Receive Date: 20100827
  Receipt Date: 20100816
  Transmission Date: 20110219
  Serious: Yes (Hospitalization, Other)
  Sender: FDA-Public Use
  Company Number: US-SANOFI-AVENTIS-A03200607610

PATIENT
  Age: 69 Year
  Sex: Male
  Weight: 95 kg

DRUGS (28)
  1. CLOPIDOGREL BISULFATE [Suspect]
     Dosage: UNIT DOSE: 75 MG
     Route: 048
     Dates: start: 20040803, end: 20060601
  2. CLOPIDOGREL BISULFATE [Suspect]
     Indication: STENT PLACEMENT
     Dosage: UNIT DOSE: 75 MG
     Route: 048
     Dates: start: 20040803, end: 20060601
  3. CLOPIDOGREL BISULFATE [Suspect]
     Route: 048
     Dates: start: 20061128, end: 20080416
  4. CLOPIDOGREL BISULFATE [Suspect]
     Route: 048
     Dates: start: 20061128, end: 20080416
  5. CLOPIDOGREL BISULFATE [Suspect]
     Route: 048
     Dates: start: 20061127, end: 20061127
  6. CLOPIDOGREL BISULFATE [Suspect]
     Route: 048
     Dates: start: 20061127, end: 20061127
  7. ASPIRIN [Suspect]
     Route: 048
     Dates: start: 19980101
  8. ASPIRIN [Suspect]
     Route: 048
     Dates: start: 19980101
  9. ASPIRIN [Suspect]
     Route: 048
     Dates: start: 20050701
  10. ASPIRIN [Suspect]
     Route: 048
     Dates: start: 20050701
  11. ASPIRIN [Suspect]
     Route: 048
  12. ASPIRIN [Suspect]
     Route: 048
  13. VALSARTAN [Concomitant]
     Route: 048
  14. VALSARTAN [Concomitant]
     Route: 048
  15. FENOFIBRATE [Concomitant]
  16. AMLODIPINE [Concomitant]
  17. COREG [Concomitant]
     Route: 048
  18. GLIPIZIDE [Concomitant]
  19. GLIPIZIDE [Concomitant]
     Route: 048
  20. FUROSEMIDE [Concomitant]
  21. FUROSEMIDE [Concomitant]
     Route: 048
  22. EYE DROPS [Concomitant]
  23. LUMIGAN [Concomitant]
  24. ALPHAGAN [Concomitant]
  25. LOPRESSOR [Concomitant]
     Route: 048
  26. GLUCOTROL [Concomitant]
     Route: 048
  27. LISINOPRIL [Concomitant]
     Route: 048
  28. AMLODIPINE [Concomitant]
     Route: 048

REACTIONS (20)
  - APHASIA [None]
  - BLINDNESS [None]
  - CAROTID ARTERY STENOSIS [None]
  - CEREBRAL HAEMORRHAGE [None]
  - CEREBROVASCULAR ACCIDENT [None]
  - CONFUSIONAL STATE [None]
  - DISORIENTATION [None]
  - DIZZINESS [None]
  - EYE PAIN [None]
  - FALL [None]
  - HAEMORRHAGE [None]
  - HEMIPLEGIA [None]
  - HYPHAEMA [None]
  - MENTAL DISORDER [None]
  - POST PROCEDURAL HAEMORRHAGE [None]
  - SINUS BRADYCARDIA [None]
  - SUBARACHNOID HAEMORRHAGE [None]
  - SYNCOPE [None]
  - TRANSIENT ISCHAEMIC ATTACK [None]
  - VENTRICULAR TACHYCARDIA [None]
